FAERS Safety Report 8487198-3 (Version None)
Quarter: 2012Q3

REPORT INFORMATION
  Report Type: 
  Country: None (occurrence: None)
  Receive Date: 20120705
  Receipt Date: 20120627
  Transmission Date: 20120928
  Serious: Yes (Death)
  Sender: FDA-Public Use
  Company Number: CO-ROCHE-1082631

PATIENT
  Age: 65 Year
  Sex: Male

DRUGS (1)
  1. MABTHERA [Suspect]
     Indication: RHEUMATOID ARTHRITIS
     Route: 042
     Dates: start: 20120605

REACTIONS (2)
  - LUNG DISORDER [None]
  - PNEUMONIA [None]
